FAERS Safety Report 6387776-1 (Version None)
Quarter: 2009Q4

REPORT INFORMATION
  Report Type: 
  Country: None (occurrence: None)
  Receive Date: 20091005
  Receipt Date: 20090928
  Transmission Date: 20100525
  Serious: Yes (Death)
  Sender: FDA-Public Use
  Company Number: ES-ROCHE-659152

PATIENT
  Sex: Male
  Weight: 65 kg

DRUGS (5)
  1. CAPECITABINE [Suspect]
     Dosage: LAST DOSE PRIOR TO SAE ON 15 AUGUST 2007, TAKEN ON DAY 1-14
     Route: 048
     Dates: start: 20070327, end: 20070815
  2. BEVACIZUMAB [Suspect]
     Dosage: FORM: INFUSION, LAST DOSE PRIOR TO SAE ON 05 AUGUST 2009
     Route: 042
     Dates: start: 20070327
  3. OXALIPLATIN [Suspect]
     Dosage: FORM: INFUSION, LAST DOSE PRIOR TO SAE ON 01 AUGUST 2007.
     Route: 042
     Dates: start: 20070327, end: 20070801
  4. DEXAMETASON [Concomitant]
     Dates: start: 20070327, end: 20090805
  5. GRANISETRON HCL [Concomitant]
     Dates: start: 20070327, end: 20090805

REACTIONS (1)
  - DYSPNOEA [None]
